FAERS Safety Report 13512335 (Version 1)
Quarter: 2017Q2

REPORT INFORMATION
  Report Type: Spontaneous
  Country: US (occurrence: US)
  Receive Date: 20170504
  Receipt Date: 20170504
  Transmission Date: 20170830
  Serious: Yes (Other)
  Sender: FDA-Public Use
  Company Number: None

PATIENT
  Age: 73 Year
  Sex: Female
  Weight: 64.8 kg

DRUGS (5)
  1. CALCIUM [Concomitant]
     Active Substance: CALCIUM
  2. POTASSIUM [Concomitant]
     Active Substance: POTASSIUM
  3. MAGNESIUM [Concomitant]
     Active Substance: MAGNESIUM
  4. BENZONATATE. [Suspect]
     Active Substance: BENZONATATE
     Indication: PULMONARY CONGESTION
     Route: 048
     Dates: start: 20140505, end: 20140507
  5. BENZONATATE. [Suspect]
     Active Substance: BENZONATATE
     Indication: COUGH
     Route: 048
     Dates: start: 20140505, end: 20140507

REACTIONS (3)
  - Decreased appetite [None]
  - Bradyphrenia [None]
  - Balance disorder [None]

NARRATIVE: CASE EVENT DATE: 20140505
